FAERS Safety Report 16087858 (Version 1)
Quarter: 2019Q1

REPORT INFORMATION
  Report Type: Spontaneous
  Country: NO (occurrence: NO)
  Receive Date: 20190319
  Receipt Date: 20190319
  Transmission Date: 20190418
  Serious: Yes (Hospitalization)
  Sender: FDA-Public Use
  Company Number: NO-ACCORD-113606

PATIENT
  Age: 80 Year
  Sex: Male

DRUGS (3)
  1. ALBYL-E [Concomitant]
     Active Substance: ASPIRIN\MAGNESIUM OXIDE
     Indication: THROMBOSIS PROPHYLAXIS
     Dosage: STRENGTH:75 MG
     Route: 048
     Dates: start: 2015, end: 20181022
  2. SIMVASTATIN. [Suspect]
     Active Substance: SIMVASTATIN
     Indication: CEREBRAL ISCHAEMIA
     Route: 048
     Dates: start: 201804, end: 20181022
  3. BETMIGA [Concomitant]
     Active Substance: MIRABEGRON
     Indication: URINARY INCONTINENCE
     Dosage: STRENGTH:50 MG
     Route: 048
     Dates: start: 201711, end: 20181022

REACTIONS (3)
  - Muscular weakness [Recovering/Resolving]
  - Rhabdomyolysis [Recovering/Resolving]
  - Somatic dysfunction [Recovering/Resolving]

NARRATIVE: CASE EVENT DATE: 201810
